FAERS Safety Report 6242865-7 (Version None)
Quarter: 2009Q2

REPORT INFORMATION
  Report Type: 
  Country: None (occurrence: None)
  Receive Date: 20090624
  Receipt Date: 20090616
  Transmission Date: 20091009
  Serious: Yes (Death)
  Sender: FDA-Public Use
  Company Number: B0580015A

PATIENT
  Sex: Female

DRUGS (7)
  1. HYCAMTIN [Suspect]
     Indication: NEOPLASM
     Dosage: 1MG PER DAY
     Route: 048
     Dates: start: 20090403, end: 20090407
  2. TENORMIN [Concomitant]
     Dosage: 100MG PER DAY
     Route: 048
  3. ZESTORETIC [Concomitant]
     Dosage: 1TAB PER DAY
     Route: 048
  4. ANTRA [Concomitant]
     Dosage: 20MG PER DAY
     Route: 048
  5. SOLDESAM [Concomitant]
     Dosage: .2%DS PER DAY
     Route: 048
  6. ZYLORIC [Concomitant]
     Dosage: 300MG PER DAY
     Route: 048
  7. CISPLATIN [Concomitant]
     Dates: start: 20080714, end: 20090310

REACTIONS (3)
  - DIARRHOEA [None]
  - FEBRILE NEUTROPENIA [None]
  - SEPTIC SHOCK [None]
